FAERS Safety Report 12671247 (Version 1)
Quarter: 2016Q3

REPORT INFORMATION
  Report Type: Spontaneous
  Country: US (occurrence: US)
  Receive Date: 20160822
  Receipt Date: 20160822
  Transmission Date: 20161109
  Serious: No
  Sender: FDA-Public Use
  Company Number: US-TEVA-597394USA

PATIENT
  Sex: Female

DRUGS (3)
  1. VITAMINS [Concomitant]
     Active Substance: VITAMINS
  2. NATURE THROID  (THYROID) [Concomitant]
  3. FEXOFENADINE [Suspect]
     Active Substance: FEXOFENADINE\FEXOFENADINE HYDROCHLORIDE
     Indication: PROPHYLAXIS
     Dosage: 120 MILLIGRAM DAILY;
     Route: 048
     Dates: start: 20150701

REACTIONS (2)
  - Off label use [Unknown]
  - Therapeutic response unexpected [Unknown]
